FAERS Safety Report 19007648 (Version 1)
Quarter: 2021Q1

REPORT INFORMATION
  Report Type: Spontaneous
  Country: CA (occurrence: CA)
  Receive Date: 20210315
  Receipt Date: 20210315
  Transmission Date: 20210420
  Serious: Yes (Hospitalization)
  Sender: FDA-Public Use
  Company Number: CA-PFIZER INC-2021252213

PATIENT
  Age: 67 Year
  Sex: Female

DRUGS (11)
  1. ASA [Concomitant]
     Active Substance: ASPIRIN
  2. LANSOPRAZOLE. [Concomitant]
     Active Substance: LANSOPRAZOLE
  3. POTASSIUM CHLORIDE. [Concomitant]
     Active Substance: POTASSIUM CHLORIDE
  4. VALGANCICLOVIR. [Concomitant]
     Active Substance: VALGANCICLOVIR
  5. TACROLIMUS. [Concomitant]
     Active Substance: TACROLIMUS
  6. PREDNISONE. [Concomitant]
     Active Substance: PREDNISONE
  7. GABAPENTIN. [Concomitant]
     Active Substance: GABAPENTIN
  8. LIPITOR [Concomitant]
     Active Substance: ATORVASTATIN CALCIUM
  9. FUROSEMIDE. [Concomitant]
     Active Substance: FUROSEMIDE
  10. REVATIO [Suspect]
     Active Substance: SILDENAFIL CITRATE
     Indication: PULMONARY HYPERTENSION
     Dosage: 20 MG
     Route: 048
     Dates: start: 20201127
  11. SEPTRA [Concomitant]
     Active Substance: SULFAMETHOXAZOLE\TRIMETHOPRIM

REACTIONS (1)
  - Malaise [Unknown]
